FAERS Safety Report 20145279 (Version 7)
Quarter: 2023Q1

REPORT INFORMATION
  Report Type: Spontaneous
  Country: IN (occurrence: IN)
  Receive Date: 20211203
  Receipt Date: 20230306
  Transmission Date: 20230418
  Serious: Yes (Other)
  Sender: FDA-Public Use
  Company Number: IN-PFIZER INC-2019512477

PATIENT
  Age: 66 Year
  Sex: Female

DRUGS (6)
  1. SUTENT [Suspect]
     Active Substance: SUNITINIB MALATE
     Indication: Metastatic renal cell carcinoma
     Dosage: ONCE A DAY, 1 WEEKS ON AND 1 WEEK OFF
     Route: 048
  2. SUTENT [Suspect]
     Active Substance: SUNITINIB MALATE
     Dosage: 50 MG, 1X/DAY
     Route: 048
     Dates: start: 20191126
  3. SUTENT [Suspect]
     Active Substance: SUNITINIB MALATE
     Dosage: 1-0-0 X 1 MONTH
     Route: 048
  4. SUTENT [Suspect]
     Active Substance: SUNITINIB MALATE
     Dosage: 25 MG, ALTERNATE DAY
     Route: 048
     Dates: start: 2022
  5. SUTENT [Suspect]
     Active Substance: SUNITINIB MALATE
     Dosage: 25 MG OD ON ALTERNATE WEEKS FOR 2 MONTHS
     Route: 048
     Dates: start: 2022
  6. SUTENT [Suspect]
     Active Substance: SUNITINIB MALATE
     Dosage: ON ALTERNATE DAYS FOR 1 MONTH
     Route: 048

REACTIONS (4)
  - Nephrolithiasis [Unknown]
  - Off label use [Unknown]
  - Off label use [Unknown]
  - Product use issue [Unknown]
